FAERS Safety Report 19070490 (Version 1)
Quarter: 2021Q1

REPORT INFORMATION
  Report Type: Spontaneous
  Country: RU (occurrence: RU)
  Receive Date: 20210329
  Receipt Date: 20210329
  Transmission Date: 20210420
  Serious: Yes (Other)
  Sender: FDA-Public Use
  Company Number: RU-BIOGEN-2021BI00994571

PATIENT

DRUGS (1)
  1. SPINRAZA [Suspect]
     Active Substance: NUSINERSEN
     Indication: SPINAL MUSCULAR ATROPHY
     Route: 065
     Dates: start: 20201123

REACTIONS (6)
  - Headache [Unknown]
  - Transaminases increased [Unknown]
  - Motor dysfunction [Unknown]
  - Blood creatine phosphokinase increased [Unknown]
  - Depression [Unknown]
  - Body temperature increased [Unknown]
